FAERS Safety Report 24378066 (Version 1)
Quarter: 2024Q3

REPORT INFORMATION
  Report Type: Spontaneous
  Country: US (occurrence: US)
  Receive Date: 20240930
  Receipt Date: 20240930
  Transmission Date: 20241016
  Serious: No
  Sender: ROCHE
  Company Number: US-ROCHE-10000086517

PATIENT
  Sex: Female

DRUGS (3)
  1. HERCEPTIN [Suspect]
     Active Substance: TRASTUZUMAB
     Indication: Product used for unknown indication
     Route: 065
  2. TUKYSA [Suspect]
     Active Substance: TUCATINIB
     Indication: Product used for unknown indication
     Route: 048
     Dates: start: 20240528
  3. TUKYSA [Suspect]
     Active Substance: TUCATINIB
     Route: 048
     Dates: start: 20240528

REACTIONS (3)
  - Hepatic enzyme increased [Unknown]
  - Hypersensitivity [Unknown]
  - Diarrhoea [Unknown]
